FAERS Safety Report 8460001-3 (Version None)
Quarter: 2012Q2

REPORT INFORMATION
  Report Type: 
  Country: None (occurrence: None)
  Receive Date: 20120622
  Receipt Date: 20120614
  Transmission Date: 20120825
  Serious: Yes (Other)
  Sender: FDA-Public Use
  Company Number: PHHY2012DE052530

PATIENT
  Sex: Male

DRUGS (2)
  1. RAMIPRIL [Suspect]
  2. OXCARBAZEPINE [Interacting]
     Dosage: 10 MG/KG, UNK

REACTIONS (3)
  - DRUG LEVEL BELOW THERAPEUTIC [None]
  - FOOD INTERACTION [None]
  - DRUG INTERACTION [None]
